FAERS Safety Report 10204750 (Version 1)
Quarter: 2014Q2

REPORT INFORMATION
  Report Type: Spontaneous
  Country: US (occurrence: US)
  Receive Date: 20140529
  Receipt Date: 20140529
  Transmission Date: 20141212
  Serious: No
  Sender: FDA-Public Use
  Company Number: US-TEVA-484473USA

PATIENT
  Age: 53 Year
  Sex: Female

DRUGS (6)
  1. NUVIGIL [Suspect]
     Indication: SOMNOLENCE
  2. CYMBALTA [Concomitant]
  3. TESTOSTERONE [Concomitant]
  4. SYNTHROID [Concomitant]
  5. WELLBUTRIN [Concomitant]
  6. VITAMIN D [Concomitant]

REACTIONS (3)
  - Somnolence [Unknown]
  - Insomnia [Unknown]
  - Drug ineffective [Unknown]
